FAERS Safety Report 12988435 (Version 2)
Quarter: 2016Q4

REPORT INFORMATION
  Report Type: Spontaneous
  Country: CA (occurrence: CA)
  Receive Date: 20161130
  Receipt Date: 20161213
  Transmission Date: 20170207
  Serious: Yes (Other)
  Sender: FDA-Public Use
  Company Number: CA-PFIZER INC-2016523406

PATIENT
  Age: 58 Year
  Sex: Male

DRUGS (2)
  1. PLAQUENIL /00072602/ [Suspect]
     Active Substance: HYDROXYCHLOROQUINE DIPHOSPHATE
     Indication: RHEUMATOID ARTHRITIS
     Dosage: 400 MG, DAILY
     Dates: start: 20151130, end: 20160105
  2. SULFASALAZINE. [Suspect]
     Active Substance: SULFASALAZINE
     Indication: RHEUMATOID ARTHRITIS
     Dosage: 2 G, DAILY
     Route: 048
     Dates: start: 20160105, end: 20160601

REACTIONS (4)
  - Renal impairment [Unknown]
  - Faeces discoloured [Unknown]
  - Diarrhoea [Unknown]
  - Muscle spasms [Unknown]
